FAERS Safety Report 11945234 (Version 1)
Quarter: 2016Q1

REPORT INFORMATION
  Report Type: Other
  Country: NL (occurrence: NL)
  Receive Date: 20160125
  Receipt Date: 20160125
  Transmission Date: 20160526
  Serious: Yes (Other)
  Sender: FDA-Public Use
  Company Number: NL-ENDO PHARMACEUTICALS INC-2016-000511

PATIENT
  Age: 45 Year
  Sex: Female

DRUGS (1)
  1. PREDNISONE TABLETS [Suspect]
     Active Substance: PREDNISONE
     Indication: PRODUCT USED FOR UNKNOWN INDICATION
     Route: 065

REACTIONS (1)
  - Osteonecrosis [Not Recovered/Not Resolved]
